FAERS Safety Report 17716485 (Version 2)
Quarter: 2020Q2

REPORT INFORMATION
  Report Type: Spontaneous
  Country: PL (occurrence: PL)
  Receive Date: 20200428
  Receipt Date: 20200507
  Transmission Date: 20200714
  Serious: Yes (Hospitalization, Other)
  Sender: FDA-Public Use
  Company Number: PL-TEVA-2020-PL-1227921

PATIENT
  Age: 51 Year
  Sex: Male

DRUGS (8)
  1. DIAZEPAM. [Suspect]
     Active Substance: DIAZEPAM
     Indication: DRUG ABUSE
     Dosage: TOTAL DOSE 700 MG
     Route: 065
  2. DIPOTASSIUM-CLORAZEPATE [Suspect]
     Active Substance: CLORAZEPATE DIPOTASSIUM
     Indication: DRUG WITHDRAWAL SYNDROME
     Dosage: SECOND DAY AT DETOXIFICATION WARD
     Route: 065
  3. DORMICUM (MIDAZOLAM) [Suspect]
     Active Substance: MIDAZOLAM HYDROCHLORIDE
     Indication: DRUG ABUSE
     Dosage: 1500 MILLIGRAM DAILY;
     Route: 065
  4. DIAZEPAM. [Suspect]
     Active Substance: DIAZEPAM
     Dosage: SECOND DAY AT DETOXIFICATION WARD
     Route: 065
  5. DIAZEPAM. [Suspect]
     Active Substance: DIAZEPAM
     Indication: DRUG WITHDRAWAL SYNDROME
     Dosage: FIRST DAY AT DETOXIFICATION WARD; LOADING DOSE
     Route: 065
  6. ESTAZOLAM. [Suspect]
     Active Substance: ESTAZOLAM
     Indication: DRUG ABUSE
     Route: 065
  7. DORMICUM (MIDAZOLAM) [Suspect]
     Active Substance: MIDAZOLAM HYDROCHLORIDE
     Route: 065
  8. DIAZEPAM. [Suspect]
     Active Substance: DIAZEPAM
     Route: 065

REACTIONS (8)
  - Status epilepticus [Recovered/Resolved]
  - Patient uncooperative [Recovered/Resolved]
  - Hallucination [Recovered/Resolved]
  - Drug ineffective [Unknown]
  - Drug abuse [Recovered/Resolved]
  - Drug withdrawal syndrome [Recovered/Resolved]
  - Psychomotor hyperactivity [Recovered/Resolved]
  - Delirium [Recovered/Resolved]
